FAERS Safety Report 8065015-3 (Version None)
Quarter: 2012Q1

REPORT INFORMATION
  Report Type: 
  Country: None (occurrence: None)
  Receive Date: 20120124
  Receipt Date: 20120111
  Transmission Date: 20120608
  Serious: Yes (Other)
  Sender: FDA-Public Use
  Company Number: US-RANBAXY-2012US-51934

PATIENT
  Age: 46 Year
  Sex: Male

DRUGS (4)
  1. IBUPROFEN [Suspect]
     Indication: PAIN
  2. IBUPROFEN [Suspect]
     Indication: CHILLS
  3. IBUPROFEN [Suspect]
     Indication: PYREXIA
     Dosage: UNK
     Route: 065
  4. IBUPROFEN [Suspect]
     Indication: DECREASED APPETITE

REACTIONS (5)
  - PORTAL VEIN PHLEBITIS [None]
  - EROSIVE OESOPHAGITIS [None]
  - GASTRITIS [None]
  - CULTURE POSITIVE [None]
  - STREPTOCOCCAL INFECTION [None]
